FAERS Safety Report 14974058 (Version 1)
Quarter: 2018Q2

REPORT INFORMATION
  Report Type: Spontaneous
  Country: CH (occurrence: CH)
  Receive Date: 20180605
  Receipt Date: 20180605
  Transmission Date: 20180711
  Serious: Yes (Life-Threatening, Hospitalization)
  Sender: FDA-Public Use
  Company Number: CH-TEVA-2018-CH-898944

PATIENT
  Age: 62 Year
  Sex: Female
  Weight: 90 kg

DRUGS (9)
  1. METFORMIN [Suspect]
     Active Substance: METFORMIN HYDROCHLORIDE
     Dosage: 3X 1000MG PER DAY
     Route: 048
     Dates: end: 20180305
  2. EDARBYCLOR [Suspect]
     Active Substance: AZILSARTAN KAMEDOXOMIL\CHLORTHALIDONE
     Dosage: 40/25 MG
     Route: 048
     Dates: end: 20180305
  3. GLIMERYL MEPHA [Concomitant]
     Dates: end: 20180305
  4. CORDARONE [Suspect]
     Active Substance: AMIODARONE HYDROCHLORIDE
     Dates: start: 20180305, end: 20180305
  5. CO-AMOXICILLIN [Suspect]
     Active Substance: AMOXICILLIN\CLAVULANATE POTASSIUM
     Dates: start: 20180305, end: 20180305
  6. ONGLYZA [Concomitant]
     Active Substance: SAXAGLIPTIN HYDROCHLORIDE
     Dosage: 1X/DAY
     Dates: end: 20180305
  7. PANTOZOL 40 MG TABLETS [Concomitant]
     Dates: end: 20180305
  8. OLFEN -75 RETARD, DEPOTABS [Suspect]
     Active Substance: DICLOFENAC SODIUM
     Dosage: 2X75 MG (UNCLEAR WHETHER/HOW MUCH TAKEN ON 05.03.2018)
     Route: 048
     Dates: start: 20180305, end: 20180305
  9. ELIQUIS [Concomitant]
     Active Substance: APIXABAN

REACTIONS (4)
  - Renal failure [Recovering/Resolving]
  - Toxicity to various agents [Recovered/Resolved]
  - Lactic acidosis [Recovering/Resolving]
  - Transaminases increased [Recovered/Resolved]

NARRATIVE: CASE EVENT DATE: 20180302
